FAERS Safety Report 5195988-8 (Version None)
Quarter: 2006Q4

REPORT INFORMATION
  Report Type: 
  Country: None (occurrence: None)
  Receive Date: 20061227
  Receipt Date: 20061227
  Transmission Date: 20070319
  Serious: Yes (Other)
  Sender: FDA-Public Use
  Company Number: None

PATIENT
  Sex: Female
  Weight: 2.2544 kg

DRUGS (1)
  1. ACETAMINOPHEN [Suspect]
     Indication: PAIN
     Dosage: 20 MG/0.2ML Q 4 HRS PO
     Route: 048
     Dates: start: 20061130

REACTIONS (2)
  - APNOEA [None]
  - BRADYCARDIA [None]
